FAERS Safety Report 15070170 (Version 1)
Quarter: 2018Q3

REPORT INFORMATION
  Report Type: Spontaneous
  Country: US (occurrence: US)
  Receive Date: 20180626
  Receipt Date: 20180626
  Transmission Date: 20181010
  Serious: Yes (Other)
  Sender: FDA-Public Use
  Company Number: US-GILEAD-2018-0344584

PATIENT
  Age: 47 Year
  Sex: Male
  Weight: 105.1 kg

DRUGS (1)
  1. YESCARTA [Suspect]
     Active Substance: AXICABTAGENE CILOLEUCEL
     Indication: DIFFUSE LARGE B-CELL LYMPHOMA
     Dosage: UNK UNK, ONCE
     Route: 042
     Dates: start: 20180102, end: 20180102

REACTIONS (5)
  - Hallucination, auditory [None]
  - Encephalopathy [Unknown]
  - Memory impairment [None]
  - Neurotoxicity [Unknown]
  - Hallucination, visual [None]

NARRATIVE: CASE EVENT DATE: 20180106
